FAERS Safety Report 13537056 (Version 1)
Quarter: 2017Q2

REPORT INFORMATION
  Report Type: Spontaneous
  Country: US (occurrence: US)
  Receive Date: 20170511
  Receipt Date: 20170511
  Transmission Date: 20170830
  Serious: Yes (Hospitalization, Other)
  Sender: FDA-Public Use
  Company Number: US-ELI_LILLY_AND_COMPANY-US201705000507

PATIENT
  Age: 70 Year
  Sex: Female

DRUGS (1)
  1. TRULICITY [Suspect]
     Active Substance: DULAGLUTIDE
     Indication: PRODUCT USED FOR UNKNOWN INDICATION
     Dosage: 1.5 MG, UNKNOWN
     Route: 065
     Dates: start: 2015

REACTIONS (12)
  - Dizziness [Unknown]
  - Head injury [Unknown]
  - Sinus arrest [Unknown]
  - Weight bearing difficulty [Unknown]
  - Upper limb fracture [Unknown]
  - Heart valve incompetence [Unknown]
  - Loss of consciousness [Unknown]
  - Ankle fracture [Unknown]
  - Loss of consciousness [Unknown]
  - Ankle fracture [Unknown]
  - Loss of consciousness [Unknown]
  - Wrist fracture [Unknown]

NARRATIVE: CASE EVENT DATE: 2015
